FAERS Safety Report 6128640-2 (Version None)
Quarter: 2009Q1

REPORT INFORMATION
  Report Type: 
  Country: None (occurrence: None)
  Receive Date: 20090323
  Receipt Date: 20090309
  Transmission Date: 20090719
  Serious: Yes (Hospitalization)
  Sender: FDA-Public Use
  Company Number: IT-B.I. PHARMACEUTICALS,INC./RIDGEFIELD-2009-IT-00009IT

PATIENT
  Sex: Male

DRUGS (2)
  1. MIRAPEX [Suspect]
     Indication: PARKINSON'S DISEASE
     Dates: start: 20040101
  2. SINEMET [Suspect]
     Indication: PARKINSON'S DISEASE
     Dates: start: 20040101

REACTIONS (8)
  - BIPOLAR I DISORDER [None]
  - CHOLECYSTITIS CHRONIC [None]
  - DEPRESSION [None]
  - DYSPEPSIA [None]
  - ECONOMIC PROBLEM [None]
  - GENERAL PHYSICAL HEALTH DETERIORATION [None]
  - MENTAL DISORDER [None]
  - PATHOLOGICAL GAMBLING [None]
